FAERS Safety Report 8797605 (Version 1)
Quarter: 2012Q4

REPORT INFORMATION
  Report Type: 
  Country: FR (occurrence: FR)
  Receive Date: 20120920
  Receipt Date: 20120920
  Transmission Date: 20130627
  Serious: No
  Sender: FDA-Public Use
  Company Number: FR-JNJFOC-20120902783

PATIENT
  Age: 90 Year
  Sex: Male

DRUGS (1)
  1. DUROGESIC [Suspect]
     Indication: ARTHRALGIA
     Dosage: since several years
     Route: 062

REACTIONS (2)
  - Inappropriate schedule of drug administration [Unknown]
  - Product quality issue [Unknown]
